FAERS Safety Report 8990669 (Version 1)
Quarter: 2012Q4

REPORT INFORMATION
  Report Type: Report from Study
  Country: US (occurrence: US)
  Receive Date: 20121228
  Receipt Date: 20121228
  Transmission Date: 20130627
  Serious: Yes (Hospitalization)
  Sender: FDA-Public Use
  Company Number: US-ROCHE-1172995

PATIENT
  Age: 52 Year
  Sex: Female
  Weight: 69.3 kg

DRUGS (10)
  1. BEVACIZUMAB [Suspect]
     Indication: OVARIAN CANCER
     Dosage: cycle: 3 weeks, phase A (cycle:1-6), phase B (cycle:7-22), over 30-90 min on day 1, beginning with c
     Route: 042
  2. BEVACIZUMAB [Suspect]
     Indication: FALLOPIAN TUBE CANCER
  3. BEVACIZUMAB [Suspect]
     Indication: MALIGNANT PERITONEAL NEOPLASM
  4. PACLITAXEL [Suspect]
     Indication: OVARIAN CANCER
     Dosage: cycle: 3 weeks, phase A (cycle:1-6), over 1 hr on day 1, 8 and 15, total dose administered: 290mg
     Route: 042
     Dates: start: 20111027
  5. PACLITAXEL [Suspect]
     Indication: FALLOPIAN TUBE CANCER
  6. PACLITAXEL [Suspect]
     Indication: MALIGNANT PERITONEAL NEOPLASM
  7. CARBOPLATIN [Suspect]
     Indication: OVARIAN CANCER
     Dosage: cycle: 3 weeks, phase A (cycle:1-6), AUC 6 IV on day 1,total dose administered: 584 mg
     Route: 042
     Dates: start: 20111027
  8. CARBOPLATIN [Suspect]
     Indication: FALLOPIAN TUBE CANCER
  9. CARBOPLATIN [Suspect]
     Indication: MALIGNANT PERITONEAL NEOPLASM
  10. AUGMENTIN [Concomitant]

REACTIONS (8)
  - Laryngeal pain [Recovered/Resolved]
  - Dehydration [Recovered/Resolved]
  - Laryngitis [Recovered/Resolved]
  - Pyrexia [Recovered/Resolved]
  - Diarrhoea [Recovered/Resolved]
  - Dysphagia [Recovered/Resolved]
  - Nausea [Recovered/Resolved]
  - Vomiting [Recovered/Resolved]
